FAERS Safety Report 5426910-4 (Version None)
Quarter: 2007Q3

REPORT INFORMATION
  Report Type: 
  Country: None (occurrence: None)
  Receive Date: 20070827
  Receipt Date: 20070815
  Transmission Date: 20080115
  Serious: Yes (Other)
  Sender: FDA-Public Use
  Company Number: US-PFIZER INC-2007068459

PATIENT
  Sex: Female

DRUGS (3)
  1. CHANTIX [Suspect]
     Indication: SMOKING CESSATION THERAPY
  2. ZOLOFT [Suspect]
     Indication: PANIC DISORDER
     Dates: start: 20040101
  3. XANAX [Concomitant]

REACTIONS (6)
  - AGITATION [None]
  - DIARRHOEA [None]
  - MUSCLE TIGHTNESS [None]
  - PANIC REACTION [None]
  - SEROTONIN SYNDROME [None]
  - TREMOR [None]
